FAERS Safety Report 7111740-8 (Version None)
Quarter: 2010Q4

REPORT INFORMATION
  Report Type: 
  Country: None (occurrence: None)
  Receive Date: 20101118
  Receipt Date: 20100916
  Transmission Date: 20110411
  Serious: Yes (Hospitalization)
  Sender: FDA-Public Use
  Company Number: US-B.I. PHARMACEUTICALS,INC./RIDGEFIELD-2010-BP-12912BP

PATIENT
  Age: 26 Year
  Sex: Female

DRUGS (7)
  1. SPIRIVA [Suspect]
     Indication: ASTHMA
  2. SINGULAIR [Concomitant]
     Indication: ASTHMA
  3. ADVENT [Concomitant]
     Indication: ASTHMA
  4. NEBULIZER WITH ALBUTEROL[ AND PULMICORT] [Concomitant]
     Indication: ASTHMA
  5. NEBULIZER WITH [ALBUTEROL AND] PULMICORT [Concomitant]
  6. RESCUE INHALERS [Concomitant]
     Indication: ASTHMA
     Route: 055
  7. UNSPECIFIED SHOT [Concomitant]
     Indication: ASTHMA

REACTIONS (1)
  - ASTHMA [None]
